FAERS Safety Report 9561443 (Version 1)
Quarter: 2013Q3

REPORT INFORMATION
  Report Type: Spontaneous
  Country: US (occurrence: US)
  Receive Date: 20130927
  Receipt Date: 20130927
  Transmission Date: 20140515
  Serious: No
  Sender: FDA-Public Use
  Company Number: US-BIOGENIDEC-2013BI060153

PATIENT
  Age: 60 Year
  Sex: Female

DRUGS (13)
  1. TECFIDERA [Suspect]
     Indication: MULTIPLE SCLEROSIS
     Route: 048
     Dates: start: 20130611, end: 20130617
  2. TECFIDERA [Suspect]
     Indication: MULTIPLE SCLEROSIS
     Route: 048
     Dates: start: 20130618, end: 20130725
  3. TECFIDERA [Suspect]
     Indication: MULTIPLE SCLEROSIS
     Route: 048
     Dates: start: 20130725, end: 20130803
  4. TECFIDERA [Suspect]
     Indication: MULTIPLE SCLEROSIS
     Route: 048
     Dates: start: 20130803, end: 20130912
  5. NALTREXONE [Concomitant]
  6. HYDROCHLOROTHIAZIDE [Concomitant]
  7. CELEXA [Concomitant]
  8. OXYBUTYNIN [Concomitant]
  9. RHODIOLA ROSCA [Concomitant]
  10. VITAMIN E, D [Concomitant]
  11. ACIDOPHILUS [Concomitant]
  12. VITAMIN B [Concomitant]
  13. CITALOPRAM [Concomitant]

REACTIONS (6)
  - Nausea [Unknown]
  - Balance disorder [Recovered/Resolved]
  - Sensation of heaviness [Recovered/Resolved]
  - Flushing [Recovered/Resolved]
  - Migraine [Recovered/Resolved]
  - Prescribed underdose [Recovered/Resolved]
